FAERS Safety Report 21287018 (Version 1)
Quarter: 2022Q3

REPORT INFORMATION
  Report Type: Report from Study
  Country: US (occurrence: None)
  Receive Date: 20220902
  Receipt Date: 20220902
  Transmission Date: 20221026
  Serious: Yes (Hospitalization, Other)
  Sender: FDA-Public Use
  Company Number: US-Eisai Inc (Eisai China)-EC-2022-120893

PATIENT
  Age: 65 Year
  Sex: Female

DRUGS (20)
  1. LENVATINIB [Suspect]
     Active Substance: LENVATINIB
     Indication: Colorectal adenocarcinoma
     Dosage: DOSE, FREQUENCY UNKNOWN
     Route: 048
     Dates: start: 20220620
  2. PEMBROLIZUMAB [Suspect]
     Active Substance: PEMBROLIZUMAB
     Indication: Colorectal adenocarcinoma
     Dosage: DOSE, FREQUENCY, ROUTE UNKNOWN
     Dates: start: 20220714
  3. INVESTIGATIONAL PRODUCT [Suspect]
     Active Substance: INVESTIGATIONAL PRODUCT
     Indication: Rectosigmoid cancer
     Route: 042
     Dates: start: 20210518, end: 20220413
  4. IPILIMUMAB [Suspect]
     Active Substance: IPILIMUMAB
     Indication: Rectosigmoid cancer
     Route: 042
     Dates: start: 20210518, end: 20220413
  5. NIVOLUMAB [Suspect]
     Active Substance: NIVOLUMAB
     Indication: Rectosigmoid cancer
     Route: 042
     Dates: start: 20210518, end: 20220413
  6. ECOTRIN [Concomitant]
     Active Substance: ASPIRIN
  7. NORVASC [Concomitant]
     Active Substance: AMLODIPINE BESYLATE
  8. ATORVASTATIN [Concomitant]
     Active Substance: ATORVASTATIN
  9. FLUTICASONE [Concomitant]
     Active Substance: FLUTICASONE
  10. GABAPENTIN [Concomitant]
     Active Substance: GABAPENTIN
  11. MONTELUKAST [Concomitant]
     Active Substance: MONTELUKAST SODIUM
  12. ZOFRAN [Concomitant]
     Active Substance: ONDANSETRON HYDROCHLORIDE
  13. BIOTIN [Concomitant]
     Active Substance: BIOTIN
  14. MIRALAX [Concomitant]
     Active Substance: POLYETHYLENE GLYCOL 3350
  15. LORATADINE [Concomitant]
     Active Substance: LORATADINE
  16. OMEPRAZOLE [Concomitant]
     Active Substance: OMEPRAZOLE
  17. OXYCODONE [Concomitant]
     Active Substance: OXYCODONE
  18. GRAMICIDIN\NEOMYCIN SULFATE\POLYMYXIN B SULFATE [Concomitant]
     Active Substance: GRAMICIDIN\NEOMYCIN SULFATE\POLYMYXIN B SULFATE
  19. PREDNISONE [Concomitant]
     Active Substance: PREDNISONE
  20. ASPIRIN [Concomitant]
     Active Substance: ASPIRIN
     Dates: end: 20210427

REACTIONS (2)
  - Enterocolitis [Recovered/Resolved]
  - Abdominal pain [Recovering/Resolving]

NARRATIVE: CASE EVENT DATE: 20220706
